FAERS Safety Report 9184427 (Version 1)
Quarter: 2012Q4

REPORT INFORMATION
  Report Type: 
  Country: US (occurrence: US)
  Receive Date: 20121101
  Receipt Date: 20121101
  Transmission Date: 20130627
  Serious: Yes (Other)
  Sender: FDA-Public Use
  Company Number: CHPA2012US022541

PATIENT
  Age: 72 Year
  Sex: Female

DRUGS (5)
  1. MAALOX ANTACID/ANTIGAS MAX QDTABS ASST [Suspect]
     Indication: GASTROOESOPHAGEAL REFLUX DISEASE
     Dosage: 3 DF, Unk
     Route: 048
     Dates: start: 2002
  2. PROTONIX [Concomitant]
     Dosage: UNK
     Dates: start: 2010
  3. NEXIUM 1-2-3 [Concomitant]
     Dosage: UNK
     Dates: start: 2005, end: 2008
  4. PRILOSEC [Concomitant]
     Dosage: UNK
     Dates: start: 2008, end: 2010
  5. PLETAL [Concomitant]
     Dosage: UNK
     Dates: start: 2010, end: 20121010

REACTIONS (7)
  - Colon neoplasm [Recovered/Resolved]
  - Ovarian neoplasm [Recovered/Resolved]
  - Pain in extremity [Not Recovered/Not Resolved]
  - Hiatus hernia [Not Recovered/Not Resolved]
  - Gastrooesophageal reflux disease [Not Recovered/Not Resolved]
  - Vomiting [Unknown]
  - Off label use [Unknown]
